FAERS Safety Report 10901263 (Version 2)
Quarter: 2015Q2

REPORT INFORMATION
  Report Type: Spontaneous
  Country: US (occurrence: US)
  Receive Date: 20150310
  Receipt Date: 20150401
  Transmission Date: 20150821
  Serious: No
  Sender: FDA-Public Use
  Company Number: US-LUNDBECK-DKLU1109182

PATIENT
  Sex: Female

DRUGS (2)
  1. NORTHERA [Suspect]
     Active Substance: DROXIDOPA
     Indication: PARKINSON^S DISEASE
  2. NORTHERA [Suspect]
     Active Substance: DROXIDOPA
     Indication: ORTHOSTATIC HYPOTENSION
     Route: 048
     Dates: start: 20150219, end: 20150223

REACTIONS (7)
  - Feeling abnormal [Unknown]
  - Affect lability [Unknown]
  - Pruritus [Unknown]
  - Pain [Unknown]
  - Blood pressure fluctuation [Unknown]
  - Somnolence [Unknown]
  - Bone pain [Unknown]
